FAERS Safety Report 5337930-2 (Version None)
Quarter: 2007Q2

REPORT INFORMATION
  Report Type: 
  Country: None (occurrence: None)
  Receive Date: 20070327
  Receipt Date: 20070110
  Transmission Date: 20071010
  Serious: No
  Sender: FDA-Public Use
  Company Number: 231898

PATIENT
  Sex: Male

DRUGS (4)
  1. AVASTIN [Suspect]
     Indication: COLON CANCER
     Dosage: 5 MG
  2. CYTOXAN [Concomitant]
  3. FLUOROURACIL [Concomitant]
  4. LEUCOVORIN (LEUCOVORIN) [Concomitant]

REACTIONS (1)
  - MUSCULAR WEAKNESS [None]
